FAERS Safety Report 4385456-5 (Version None)
Quarter: 2004Q2

REPORT INFORMATION
  Report Type: 
  Country: None (occurrence: None)
  Receive Date: 20040622
  Receipt Date: 20040604
  Transmission Date: 20050107
  Serious: Yes (Hospitalization)
  Sender: FDA-Public Use
  Company Number: F03200400051

PATIENT
  Age: 74 Year
  Sex: Male
  Weight: 88.2 kg

DRUGS (11)
  1. OXALIPLATIN - SOLUTION - UNIT DOSE : UNKNOWN [Suspect]
     Indication: COLORECTAL CANCER METASTATIC
     Dosage: INTRAVENOUS NOS
     Route: 042
     Dates: start: 20040403, end: 20040403
  2. PTK787/ZK 222584 VS. PLACEBO - UNKNOWN - UNIT DOSE : UNKNOWN [Suspect]
     Indication: COLORECTAL CANCER METASTATIC
     Dosage: ORAL
     Route: 048
     Dates: start: 20031210, end: 20040403
  3. FLUOROURACIL [Concomitant]
  4. LEUCOVORIN [Concomitant]
  5. FLUTICASONE PROPIONATE/SALMETEROL [Concomitant]
  6. TAMSULOSIN HYDROCHLORIDE [Concomitant]
  7. PANTOPRAZOLE SODIUM [Concomitant]
  8. ZAFIRLUKAST [Concomitant]
  9. POTASSIUM [Concomitant]
  10. BUMETANIDE [Concomitant]
  11. HERBAL ONT [Concomitant]

REACTIONS (9)
  - ABDOMINAL PAIN [None]
  - ASCITES [None]
  - CONDITION AGGRAVATED [None]
  - FAILURE TO THRIVE [None]
  - FATIGUE [None]
  - MALIGNANT NEOPLASM PROGRESSION [None]
  - METASTASES TO LIVER [None]
  - METASTASES TO LUNG [None]
  - PLEURAL EFFUSION [None]
